FAERS Safety Report 9114252 (Version 1)
Quarter: 2013Q1

REPORT INFORMATION
  Report Type: Report from Study
  Country: JP (occurrence: JP)
  Receive Date: 20130208
  Receipt Date: 20130208
  Transmission Date: 20140127
  Serious: Yes (Hospitalization)
  Sender: FDA-Public Use
  Company Number: JP-ROCHE-GNE314844

PATIENT
  Age: 58 Year
  Sex: Male
  Weight: 50.05 kg

DRUGS (16)
  1. XOLAIR [Suspect]
     Indication: ASTHMA
     Dosage: 300 MG, 1/MONTH
     Route: 065
     Dates: start: 20100130
  2. XOLAIR [Suspect]
     Dosage: 300 MG, 1/MONTH
     Route: 058
     Dates: start: 20100305
  3. XOLAIR [Suspect]
     Dosage: 300 MG, 1/MONTH
     Route: 058
     Dates: start: 20100416
  4. XOLAIR [Suspect]
     Dosage: 300 MG, 1/MONTH
     Route: 058
     Dates: start: 20100508, end: 20100508
  5. METHYLPREDNISOLONE SODIUM SUCCINATE [Concomitant]
     Dosage: 125MG ONCE
     Route: 065
     Dates: start: 20100130
  6. METHYLPREDNISOLONE SODIUM SUCCINATE [Concomitant]
     Route: 065
     Dates: start: 20100501, end: 20100502
  7. METHYLPREDNISOLONE SODIUM SUCCINATE [Concomitant]
     Route: 065
     Dates: start: 20100503, end: 20100504
  8. METHYLPREDNISOLONE SODIUM SUCCINATE [Concomitant]
     Route: 065
     Dates: start: 20100505, end: 20100506
  9. METHYLPREDNISOLONE SODIUM SUCCINATE [Concomitant]
     Route: 065
     Dates: start: 20100507, end: 20100508
  10. FLUTICASONE PROPIONATE/SALMETEROL XINAFOATE [Concomitant]
     Route: 065
     Dates: start: 200907, end: 20100508
  11. SINGULAIR [Concomitant]
     Dosage: 10 MG, UNK
     Route: 065
     Dates: start: 20100116, end: 20100508
  12. THEO-DUR [Concomitant]
     Dosage: UNK
     Route: 065
     Dates: start: 200907
  13. THEO-DUR [Concomitant]
     Route: 065
     Dates: end: 20100508
  14. PREDNISONE [Concomitant]
     Dosage: UNK
     Route: 065
     Dates: start: 200907
  15. PREDNISONE [Concomitant]
     Route: 065
     Dates: end: 20100508
  16. MEPTIN [Concomitant]
     Dosage: UNK
     Route: 065
     Dates: start: 200907, end: 20100508

REACTIONS (1)
  - Asthma [Recovered/Resolved]
